FAERS Safety Report 14161921 (Version 1)
Quarter: 2017Q4

REPORT INFORMATION
  Report Type: Spontaneous
  Country: US (occurrence: US)
  Receive Date: 20171106
  Receipt Date: 20171106
  Transmission Date: 20180321
  Serious: No
  Sender: FDA-Public Use
  Company Number: US-SHIRE-US201725353

PATIENT
  Age: 47 Year

DRUGS (1)
  1. GATTEX [Suspect]
     Active Substance: TEDUGLUTIDE\WATER
     Indication: SHORT-BOWEL SYNDROME
     Dosage: .3 UNK, UNK
     Route: 065

REACTIONS (3)
  - Depression [Recovered/Resolved]
  - Weight increased [Recovered/Resolved]
  - Eating disorder symptom [Recovered/Resolved]

NARRATIVE: CASE EVENT DATE: 20151209
